FAERS Safety Report 5483247-5 (Version None)
Quarter: 2007Q4

REPORT INFORMATION
  Report Type: 
  Country: None (occurrence: None)
  Receive Date: 20071009
  Receipt Date: 20070927
  Transmission Date: 20080405
  Serious: Yes (Disabling)
  Sender: FDA-Public Use
  Company Number: GXKR2007GB08388

PATIENT
  Age: 90 Year
  Sex: Male

DRUGS (2)
  1. SIMVASTATIN [Suspect]
     Dosage: 10 MG, ORAL
     Route: 048
  2. ASPIRIN [Concomitant]

REACTIONS (2)
  - HAEMATURIA [None]
  - POST PROCEDURAL HAEMORRHAGE [None]
